FAERS Safety Report 5171457-6 (Version None)
Quarter: 2006Q4

REPORT INFORMATION
  Report Type: 
  Country: None (occurrence: None)
  Receive Date: 20061208
  Receipt Date: 20061208
  Transmission Date: 20070319
  Serious: Yes (Hospitalization)
  Sender: FDA-Public Use
  Company Number: None

PATIENT
  Age: 46 Year
  Sex: Male
  Weight: 84.4 kg

DRUGS (14)
  1. TACROLIMUS [Suspect]
     Indication: GRAFT VERSUS HOST DISEASE
     Dosage: 1.5 MG BID PO
     Route: 048
     Dates: start: 20060906, end: 20061012
  2. DAPSONE [Concomitant]
  3. PYRIMETHAMINE TAB [Concomitant]
  4. LEUCOVORIN CALCIUM [Concomitant]
  5. FILGRASTIM [Concomitant]
  6. PANTOPRAZOLE SODIUM [Concomitant]
  7. FOLIC ACID [Concomitant]
  8. SCOPOLAMINE [Concomitant]
  9. FLUCONAZOLE [Concomitant]
  10. CEFEPIME [Concomitant]
  11. MAGNESIUM OXIDE [Concomitant]
  12. SENNA WITH DOCUSATE [Concomitant]
  13. GANCICLOVIR [Concomitant]
  14. OXYBUTYNIN [Concomitant]

REACTIONS (5)
  - BLOOD CREATININE INCREASED [None]
  - BLOOD URINE PRESENT [None]
  - DYSURIA [None]
  - HAEMOLYTIC URAEMIC SYNDROME [None]
  - THROMBOTIC THROMBOCYTOPENIC PURPURA [None]
